FAERS Safety Report 23164695 (Version 2)
Quarter: 2023Q4

REPORT INFORMATION
  Report Type: Report from Study
  Country: US (occurrence: US)
  Receive Date: 20231109
  Receipt Date: 20231115
  Transmission Date: 20240110
  Serious: Yes (Hospitalization)
  Sender: FDA-Public Use
  Company Number: US-INSMED, INC.-2023-01913-US

PATIENT
  Sex: Male

DRUGS (4)
  1. ARIKAYCE [Suspect]
     Active Substance: AMIKACIN
     Indication: Mycobacterial infection
     Dosage: 590 MILLIGRAM, QD
     Route: 055
     Dates: start: 2022, end: 202304
  2. ARIKAYCE [Suspect]
     Active Substance: AMIKACIN
     Dosage: UNK UNK, QD
     Route: 055
     Dates: start: 20230612, end: 2023
  3. ARIKAYCE [Suspect]
     Active Substance: AMIKACIN
     Dosage: 590 MILLIGRAM, QD
     Route: 055
     Dates: start: 2023, end: 202310
  4. AMIKACIN [Concomitant]
     Active Substance: AMIKACIN
     Indication: Product used for unknown indication
     Dosage: UNK
     Route: 042

REACTIONS (8)
  - Lung transplant [Unknown]
  - Pneumonia [Unknown]
  - Haemoptysis [Unknown]
  - Adverse drug reaction [Not Recovered/Not Resolved]
  - Feeling abnormal [Not Recovered/Not Resolved]
  - Illness [Unknown]
  - Product contamination microbial [Unknown]
  - Drug dose omission by device [Unknown]

NARRATIVE: CASE EVENT DATE: 20230101
